FAERS Safety Report 16730250 (Version 15)
Quarter: 2022Q3

REPORT INFORMATION
  Report Type: Report from Study
  Country: JP (occurrence: JP)
  Receive Date: 20190822
  Receipt Date: 20220913
  Transmission Date: 20221027
  Serious: Yes (Death, Hospitalization, Other)
  Sender: FDA-Public Use
  Company Number: JP-ONO-2019JP028392

PATIENT
  Age: 81 Year
  Sex: Female
  Weight: 55.7 kg

DRUGS (25)
  1. ETELCALCETIDE [Suspect]
     Active Substance: ETELCALCETIDE
     Indication: Hyperparathyroidism secondary
     Dosage: 2.5 MILLIGRAM, Q56H
     Route: 010
     Dates: start: 20190212, end: 20190820
  2. ETELCALCETIDE [Suspect]
     Active Substance: ETELCALCETIDE
     Dosage: 5 MILLIGRAM, Q56H
     Route: 010
     Dates: start: 20190212
  3. OPALMON [Suspect]
     Active Substance: LIMAPROST
     Indication: Product used for unknown indication
     Dosage: UNK
     Route: 048
  4. DARBEPOETIN ALFA [Concomitant]
     Active Substance: DARBEPOETIN ALFA
     Dosage: 40 MICROGRAM, QWK
     Route: 065
     Dates: end: 20190507
  5. DARBEPOETIN ALFA [Concomitant]
     Active Substance: DARBEPOETIN ALFA
     Dosage: 20 MICROGRAM, QWK
     Route: 065
     Dates: start: 20200514, end: 20200602
  6. DARBEPOETIN ALFA [Concomitant]
     Active Substance: DARBEPOETIN ALFA
     Dosage: 40 MICROGRAM, QWK
     Route: 065
     Dates: start: 20200609, end: 20200820
  7. DARBEPOETIN ALFA [Concomitant]
     Active Substance: DARBEPOETIN ALFA
     Dosage: 80 MICROGRAM, QWK
     Route: 065
     Dates: start: 20200825, end: 20210406
  8. DARBEPOETIN ALFA [Concomitant]
     Active Substance: DARBEPOETIN ALFA
     Dosage: 60 MICROGRAM, QWK
     Route: 065
     Dates: start: 20210511
  9. OXAROL [Concomitant]
     Active Substance: MAXACALCITOL
     Dosage: 2.5 MICROGRAM, Q84H(UNK-2019/01/12)
     Route: 010
  10. OXAROL [Concomitant]
     Active Substance: MAXACALCITOL
     Dosage: 2.5 MICROGRAM, Q56H
     Route: 010
     Dates: start: 20190115, end: 20190413
  11. OXAROL [Concomitant]
     Active Substance: MAXACALCITOL
     Dosage: 5.0 MICROGRAM, Q56H
     Route: 010
     Dates: start: 20190416, end: 20190903
  12. OXAROL [Concomitant]
     Active Substance: MAXACALCITOL
     Dosage: 7.5 MICROGRAM, Q56H
     Route: 010
     Dates: start: 20190905, end: 20210306
  13. OXAROL [Concomitant]
     Active Substance: MAXACALCITOL
     Dosage: 5.0 MICROGRAM, Q56H
     Route: 010
     Dates: start: 20210309, end: 20210603
  14. CARVEDILOL [Concomitant]
     Active Substance: CARVEDILOL
     Dosage: UNK
     Route: 065
  15. FOSRENOL [Concomitant]
     Active Substance: LANTHANUM CARBONATE
     Dosage: 500 MILLIGRAM, EVERYDAY(UNK-2019/02/12)
     Route: 065
     Dates: end: 20190212
  16. FOSRENOL [Concomitant]
     Active Substance: LANTHANUM CARBONATE
     Dosage: 750 MILLIGRAM, QD
     Route: 065
     Dates: start: 20201022, end: 20201130
  17. Fesin [Concomitant]
     Dosage: 40 MILLIGRAM, QWK, (UNK-2019/04/06)
     Route: 042
  18. CLOPIDOGREL [Concomitant]
     Active Substance: CLOPIDOGREL BISULFATE
     Dosage: UNK
     Route: 048
     Dates: end: 20190510
  19. CLOPIDOGREL [Concomitant]
     Active Substance: CLOPIDOGREL BISULFATE
     Dosage: UNK
     Route: 048
     Dates: start: 20190513
  20. MIRCERA [Concomitant]
     Active Substance: METHOXY POLYETHYLENE GLYCOL-EPOETIN BETA
     Dosage: 300 MICROGRAM, QMO
     Route: 065
     Dates: start: 20190514, end: 20200317
  21. FERRIC CITRATE ANHYDROUS [Concomitant]
     Active Substance: FERRIC CITRATE ANHYDROUS
     Dosage: 750 MILLIGRAM, QD
     Route: 065
     Dates: start: 20191217, end: 20200601
  22. CALCIUM CARBONATE [Concomitant]
     Active Substance: CALCIUM CARBONATE
     Dosage: 1000 MILLIGRAM, QD
     Route: 065
     Dates: start: 20210112, end: 20211013
  23. CALCIUM CARBONATE [Concomitant]
     Active Substance: CALCIUM CARBONATE
     Dosage: 1500 MILLIGRAM, QD
     Route: 065
     Dates: start: 20211014
  24. ROXADUSTAT [Concomitant]
     Active Substance: ROXADUSTAT
     Dosage: 300 MILLIGRAM, QWK
     Route: 065
     Dates: start: 20210413, end: 20210427
  25. ROXADUSTAT [Concomitant]
     Active Substance: ROXADUSTAT
     Dosage: 450 MILLIGRAM, QWK
     Dates: start: 20210429, end: 20220226

REACTIONS (10)
  - Sepsis [Fatal]
  - Pneumonia [Fatal]
  - Angina unstable [Recovering/Resolving]
  - Cardiac failure [Recovering/Resolving]
  - Gastric ulcer haemorrhage [Recovering/Resolving]
  - Gastric ulcer [Recovering/Resolving]
  - Cardiac failure [Recovered/Resolved]
  - Shunt stenosis [Recovered/Resolved]
  - Shunt stenosis [Recovered/Resolved]
  - Shunt stenosis [Recovered/Resolved]

NARRATIVE: CASE EVENT DATE: 20190511
